FAERS Safety Report 22032944 (Version 1)
Quarter: 2023Q1

REPORT INFORMATION
  Report Type: Spontaneous
  Country: IT (occurrence: IT)
  Receive Date: 20230224
  Receipt Date: 20230224
  Transmission Date: 20230418
  Serious: Yes (Other)
  Sender: FDA-Public Use
  Company Number: IT-MYLANLABS-2023M1020134

PATIENT
  Sex: Male

DRUGS (1)
  1. LYRICA [Suspect]
     Active Substance: PREGABALIN
     Indication: Anxiety
     Dosage: UNK
     Route: 065

REACTIONS (3)
  - Altered state of consciousness [Unknown]
  - Fear [Unknown]
  - Laziness [Unknown]
